FAERS Safety Report 9400848 (Version 1)
Quarter: 2013Q3

REPORT INFORMATION
  Report Type: Spontaneous
  Country: CN (occurrence: CN)
  Receive Date: 20130715
  Receipt Date: 20130715
  Transmission Date: 20140515
  Serious: Yes (Other)
  Sender: FDA-Public Use
  Company Number: CN-ROXANE LABORATORIES, INC.-2013-RO-01138RO

PATIENT
  Age: 15 Year
  Sex: Female

DRUGS (7)
  1. PREDNISONE [Suspect]
     Indication: IMMUNE THROMBOCYTOPENIC PURPURA
     Dosage: 40 MG
  2. DEXAMETHASONE [Suspect]
     Indication: IMMUNE THROMBOCYTOPENIC PURPURA
  3. MERCAPTOPURINE [Suspect]
     Indication: IMMUNE THROMBOCYTOPENIC PURPURA
  4. IMMUNOGLOBULIN [Suspect]
     Indication: IMMUNE THROMBOCYTOPENIC PURPURA
     Route: 042
  5. DANAZOL [Suspect]
     Indication: IMMUNE THROMBOCYTOPENIC PURPURA
  6. RITUXIMAB [Suspect]
     Indication: IMMUNE THROMBOCYTOPENIC PURPURA
  7. DEXAMETHASONE [Suspect]
     Indication: IMMUNE THROMBOCYTOPENIC PURPURA
     Dosage: 10 MG
     Route: 042

REACTIONS (2)
  - Immune thrombocytopenic purpura [Unknown]
  - Cushing^s syndrome [Unknown]
